FAERS Safety Report 16141494 (Version 1)
Quarter: 2019Q2

REPORT INFORMATION
  Report Type: Spontaneous
  Country: US (occurrence: US)
  Receive Date: 20190331
  Receipt Date: 20190331
  Transmission Date: 20190711
  Serious: No
  Sender: FDA-Public Use
  Company Number: None

PATIENT
  Age: 8 Year
  Sex: Male

DRUGS (1)
  1. QVAR REDIHALER [Suspect]
     Active Substance: BECLOMETHASONE DIPROPIONATE
     Indication: ASTHMA PROPHYLAXIS
     Route: 055
     Dates: start: 20190301, end: 20190317

REACTIONS (3)
  - Depression [None]
  - Suicidal ideation [None]
  - Crying [None]

NARRATIVE: CASE EVENT DATE: 20190316
